FAERS Safety Report 15297035 (Version 11)
Quarter: 2025Q2

REPORT INFORMATION
  Report Type: Spontaneous
  Country: JP (occurrence: JP)
  Receive Date: 20180820
  Receipt Date: 20250422
  Transmission Date: 20250716
  Serious: Yes (Hospitalization)
  Sender: LUNDBECK
  Company Number: JP-SANOFI-2018SA197647

PATIENT
  Age: 2 Month
  Sex: Male
  Weight: 8.2 kg

DRUGS (32)
  1. SABRIL [Suspect]
     Active Substance: VIGABATRIN
     Indication: Infantile spasms
     Dosage: 200 MG DAILY IN TWO DIVIDED DOSES.
     Route: 048
     Dates: start: 20170424, end: 20170427
  2. SABRIL [Suspect]
     Active Substance: VIGABATRIN
     Dosage: 600 MG DAILY IN TWO DIVIDED DOSES
     Route: 048
     Dates: start: 20181029, end: 20181102
  3. SABRIL [Suspect]
     Active Substance: VIGABATRIN
     Dosage: 400 MG DAILY IN TWO DIVIDED DOSES
     Route: 048
     Dates: start: 20181103, end: 20181111
  4. SABRIL [Suspect]
     Active Substance: VIGABATRIN
     Dosage: 600 MG DAILY IN TWO DIVIDED DOSES
     Route: 048
     Dates: start: 20181112, end: 20210721
  5. SABRIL [Suspect]
     Active Substance: VIGABATRIN
     Dosage: 500 MG DAILY IN TWO DIVIDED DOSES
     Route: 048
     Dates: start: 20210722, end: 20210915
  6. SABRIL [Suspect]
     Active Substance: VIGABATRIN
     Dosage: 400 MG DAILY IN TWO DIVIDED DOSES
     Route: 048
     Dates: start: 20210916, end: 20220312
  7. SABRIL [Suspect]
     Active Substance: VIGABATRIN
     Dosage: 300 MG DAILY IN TWO DIVIDED DOSES
     Route: 048
     Dates: start: 20220313, end: 20220406
  8. SABRIL [Suspect]
     Active Substance: VIGABATRIN
     Dosage: 500 MG DAILY IN TWO DIVIDED DOSES
     Route: 048
     Dates: start: 20220407
  9. SABRIL [Suspect]
     Active Substance: VIGABATRIN
     Dosage: 400 MG DAILY IN TWO DIVIDED DOSES
     Route: 048
     Dates: start: 20170502, end: 20170507
  10. SABRIL [Suspect]
     Active Substance: VIGABATRIN
     Dosage: 500 MG DAILY IN TWO DIVIDED DOSES
     Route: 048
     Dates: start: 20170508, end: 20170511
  11. SABRIL [Suspect]
     Active Substance: VIGABATRIN
     Dosage: 700 MG DAILY IN TWO DIVIDED DOSES
     Route: 048
     Dates: start: 20170512, end: 20170515
  12. SABRIL [Suspect]
     Active Substance: VIGABATRIN
     Dosage: 750 MG DAILY IN TWO DIVIDED DOSES
     Route: 048
     Dates: start: 20170516, end: 20170521
  13. SABRIL [Suspect]
     Active Substance: VIGABATRIN
     Dosage: 500 MG DAILY IN TWO DIVIDED DOSES
     Route: 048
     Dates: start: 20170522, end: 20170712
  14. SABRIL [Suspect]
     Active Substance: VIGABATRIN
     Dosage: 600 MG DAILY IN TWO DIVIDED DOSES
     Route: 048
     Dates: start: 20170713, end: 20170806
  15. SABRIL [Suspect]
     Active Substance: VIGABATRIN
     Dosage: 700 MG DAILY IN TWO DIVIDED DOSES
     Route: 048
     Dates: start: 20170807, end: 20170910
  16. SABRIL [Suspect]
     Active Substance: VIGABATRIN
     Dosage: 800 MG DAILY IN TWO DIVIDED DOSES
     Route: 048
     Dates: start: 20170911, end: 20181028
  17. NITRAZEPAM [Suspect]
     Active Substance: NITRAZEPAM
     Indication: Infantile spasms
     Route: 048
     Dates: start: 20180816, end: 20220126
  18. NITRAZEPAM [Suspect]
     Active Substance: NITRAZEPAM
     Route: 048
     Dates: start: 20220127
  19. VITAMIN B6 [Concomitant]
     Active Substance: PYRIDOXINE HYDROCHLORIDE
     Indication: Infantile spasms
     Route: 048
     Dates: start: 20170414, end: 20170423
  20. BENZOIC ACID [Concomitant]
     Active Substance: BENZOIC ACID
     Indication: Infantile spasms
     Route: 048
     Dates: start: 20170814
  21. DEXTROMETHORPHAN [Concomitant]
     Active Substance: DEXTROMETHORPHAN
     Indication: Infantile spasms
     Route: 048
     Dates: start: 20170921
  22. CARTINE [Concomitant]
     Indication: Prophylaxis
     Route: 048
     Dates: start: 20170831
  23. CARTINE [Concomitant]
     Indication: Investigation
  24. INCREMIN C IRON [Concomitant]
     Indication: Product used for unknown indication
     Route: 048
     Dates: start: 20171006, end: 20180512
  25. PERAMPANEL [Concomitant]
     Active Substance: PERAMPANEL
     Indication: Infantile spasms
     Route: 048
     Dates: start: 20171117, end: 20201109
  26. RAMELTEON [Concomitant]
     Active Substance: RAMELTEON
     Indication: Infantile spasms
     Route: 048
     Dates: start: 20171201, end: 20181102
  27. MAGNESIUM OXIDE [Concomitant]
     Active Substance: MAGNESIUM OXIDE
     Indication: Product used for unknown indication
     Route: 048
     Dates: start: 20180523
  28. GABAPENTIN [Concomitant]
     Active Substance: GABAPENTIN
     Indication: Product used for unknown indication
     Route: 048
     Dates: start: 20190422, end: 20191113
  29. TIZANIDINE HYDROCHLORIDE [Concomitant]
     Active Substance: TIZANIDINE HYDROCHLORIDE
     Indication: Product used for unknown indication
     Dates: start: 20190124, end: 20210113
  30. ARIPIPRAZOLE [Concomitant]
     Active Substance: ARIPIPRAZOLE
     Indication: Product used for unknown indication
     Route: 048
     Dates: start: 20190124
  31. CARBOCYSTEINE [Concomitant]
     Active Substance: CARBOCYSTEINE
     Indication: Product used for unknown indication
     Route: 048
     Dates: start: 20181107
  32. TRIHEXYPHENIDYL HYDROCHLORIDE [Concomitant]
     Active Substance: TRIHEXYPHENIDYL HYDROCHLORIDE
     Indication: Product used for unknown indication
     Route: 048
     Dates: start: 20181121

REACTIONS (5)
  - Secretion discharge [Recovering/Resolving]
  - Secretion discharge [Recovering/Resolving]
  - Hyperuricaemia [Recovering/Resolving]
  - Calculus urinary [Recovering/Resolving]
  - Sedation [Unknown]

NARRATIVE: CASE EVENT DATE: 20180923
